FAERS Safety Report 13710336 (Version 1)
Quarter: 2017Q3

REPORT INFORMATION
  Report Type: Spontaneous
  Country: ES (occurrence: ES)
  Receive Date: 20170703
  Receipt Date: 20170703
  Transmission Date: 20171127
  Serious: Yes (Disabling, Other)
  Sender: FDA-Public Use
  Company Number: ES-ROCHE-1958378

PATIENT
  Age: 38 Year
  Sex: Female

DRUGS (7)
  1. SPIRIVA [Concomitant]
     Active Substance: TIOTROPIUM BROMIDE MONOHYDRATE
     Indication: PRODUCT USED FOR UNKNOWN INDICATION
     Dosage: 2 INH/24 H
     Route: 065
  2. XOLAIR [Suspect]
     Active Substance: OMALIZUMAB
     Indication: ASTHMA
     Route: 065
     Dates: start: 20160223
  3. XOLAIR [Suspect]
     Active Substance: OMALIZUMAB
     Route: 058
     Dates: start: 20170525
  4. FLUTICASONA [Concomitant]
     Active Substance: FLUTICASONE PROPIONATE
     Indication: PRODUCT USED FOR UNKNOWN INDICATION
     Dosage: 250 OT, UNK
     Route: 065
  5. SERETIDE [Concomitant]
     Active Substance: FLUTICASONE PROPIONATE\SALMETEROL XINAFOATE
     Indication: PRODUCT USED FOR UNKNOWN INDICATION
     Dosage: 25 / 250 UNK, UNK
     Route: 065
  6. SINGULAIR [Concomitant]
     Active Substance: MONTELUKAST SODIUM
     Indication: PRODUCT USED FOR UNKNOWN INDICATION
     Dosage: 10 MG,24 H
     Route: 065
  7. XOLAIR [Suspect]
     Active Substance: OMALIZUMAB
     Route: 058
     Dates: start: 201702

REACTIONS (11)
  - Asthenia [Recovered/Resolved]
  - Pruritus generalised [Not Recovered/Not Resolved]
  - Lymphadenopathy [Recovered/Resolved]
  - Leukopenia [Recovered/Resolved]
  - Weight decreased [Unknown]
  - Pyrexia [Recovered/Resolved]
  - Back pain [Recovered/Resolved]
  - Lymphocyte count decreased [Recovered/Resolved]
  - Arthralgia [Recovered/Resolved]
  - Skin lesion [Recovered/Resolved]
  - Neutrophil count decreased [Recovered/Resolved]

NARRATIVE: CASE EVENT DATE: 20160223
